FAERS Safety Report 14493234 (Version 2)
Quarter: 2018Q1

REPORT INFORMATION
  Report Type: Spontaneous
  Country: US (occurrence: US)
  Receive Date: 20180206
  Receipt Date: 20180305
  Transmission Date: 20180509
  Serious: Yes (Hospitalization)
  Sender: FDA-Public Use
  Company Number: US-JNJFOC-20180201872

PATIENT
  Sex: Male

DRUGS (1)
  1. ZYTIGA [Suspect]
     Active Substance: ABIRATERONE ACETATE
     Indication: PRODUCT USED FOR UNKNOWN INDICATION
     Dosage: 250 MG TABLET
     Route: 048
     Dates: start: 20170929

REACTIONS (3)
  - Prostatic specific antigen increased [Not Recovered/Not Resolved]
  - Bone cancer [Not Recovered/Not Resolved]
  - Drug ineffective [Unknown]
